FAERS Safety Report 9058587 (Version 1)
Quarter: 2013Q1

REPORT INFORMATION
  Report Type: Spontaneous
  Country: US (occurrence: US)
  Receive Date: 20130211
  Receipt Date: 20130211
  Transmission Date: 20140127
  Serious: Yes (Other)
  Sender: FDA-Public Use
  Company Number: US-PFIZER INC-2013052842

PATIENT
  Sex: Female

DRUGS (2)
  1. NORVASC [Suspect]
     Dosage: UNK
  2. NEURONTIN [Suspect]
     Dosage: UNK

REACTIONS (3)
  - Staphylococcal infection [Unknown]
  - Arthralgia [Unknown]
  - Bronchitis [Unknown]
